FAERS Safety Report 10018652 (Version 3)
Quarter: 2014Q1

REPORT INFORMATION
  Report Type: Report from Study
  Country: ES (occurrence: ES)
  Receive Date: 20140318
  Receipt Date: 20140328
  Transmission Date: 20141002
  Serious: Yes (Death, Hospitalization)
  Sender: FDA-Public Use
  Company Number: ES-B.I. PHARMACEUTICALS,INC./RIDGEFIELD-2013-ES-00041ES

PATIENT
  Age: 39 Year
  Sex: Female
  Weight: 48 kg

DRUGS (9)
  1. PREDNISONA [Concomitant]
     Indication: DYSPNOEA
     Dosage: 40 MG
     Route: 048
     Dates: start: 20130125, end: 20130208
  2. FAMCICLOVIR [Concomitant]
     Indication: MUCOSAL INFLAMMATION
     Dosage: 500 MG
     Route: 048
     Dates: start: 20130128, end: 20130208
  3. SIROLIMUS [Suspect]
     Indication: NON-SMALL CELL LUNG CANCER
     Route: 065
  4. BIBW 2992 [Suspect]
     Indication: NON-SMALL CELL LUNG CANCER
     Dosage: 30 MG
     Route: 048
     Dates: start: 20130116, end: 20130130
  5. SIROLIMUS [Suspect]
     Indication: NON-SMALL CELL LUNG CANCER
     Dosage: 3 MG
     Route: 048
     Dates: start: 20130108, end: 20130130
  6. MYCOSTATIN [Concomitant]
     Indication: MUCOSAL INFLAMMATION
     Route: 048
     Dates: start: 20130128, end: 20130208
  7. PRODERMA [Concomitant]
     Indication: RASH
     Dosage: PRN
     Route: 061
     Dates: start: 20130128, end: 20130208
  8. LIDOCAINE [Concomitant]
     Indication: MUCOSAL INFLAMMATION
     Dosage: STRENGHT: 2%; DAILY DOSE: PRN
     Route: 061
     Dates: start: 20130128, end: 20130208
  9. RANITIDINA [Concomitant]
     Indication: PROPHYLAXIS AGAINST GASTROINTESTINAL ULCER
     Dosage: 300 MG
     Route: 048
     Dates: start: 20130107, end: 20130208

REACTIONS (7)
  - Malignant neoplasm progression [Fatal]
  - Respiratory failure [Recovered/Resolved]
  - Pneumonia [Recovered/Resolved]
  - Nausea [Recovered/Resolved]
  - Abdominal pain upper [Unknown]
  - Convulsion [Recovered/Resolved]
  - Asthenia [Unknown]
